FAERS Safety Report 7483477-7 (Version None)
Quarter: 2011Q2

REPORT INFORMATION
  Report Type: 
  Country: None (occurrence: None)
  Receive Date: 20110517
  Receipt Date: 20110505
  Transmission Date: 20111010
  Serious: Yes (Hospitalization, Other)
  Sender: FDA-Public Use
  Company Number: US-JNJFOC-20110503254

PATIENT
  Sex: Female
  Weight: 68.04 kg

DRUGS (2)
  1. FENTANYL [Concomitant]
     Indication: PRODUCT USED FOR UNKNOWN INDICATION
     Route: 062
     Dates: start: 20010101
  2. ORTHO-NOVUM [Suspect]
     Indication: CONTRACEPTION
     Route: 048
     Dates: start: 19980101, end: 20030101

REACTIONS (4)
  - SCIATIC NERVE INJURY [None]
  - ABNORMAL LOSS OF WEIGHT [None]
  - WEIGHT INCREASED [None]
  - ACCIDENT [None]
